FAERS Safety Report 5134647-4 (Version None)
Quarter: 2006Q4

REPORT INFORMATION
  Report Type: 
  Country: None (occurrence: None)
  Receive Date: 20061025
  Receipt Date: 20061016
  Transmission Date: 20070319
  Serious: Yes (Hospitalization)
  Sender: FDA-Public Use
  Company Number: F1-EXT-2006-0063

PATIENT
  Age: 35 Year
  Sex: Male

DRUGS (6)
  1. RANIPLEX [Suspect]
     Dosage: 150MG PER DAY
     Route: 048
     Dates: end: 20060830
  2. LOVENOX [Suspect]
     Dosage: 40MG PER DAY
     Route: 058
     Dates: start: 20060830, end: 20060831
  3. NEO-MERCAZOLE TAB [Concomitant]
     Indication: BASEDOW'S DISEASE
     Route: 065
     Dates: start: 20040501
  4. HALDOL [Concomitant]
     Route: 065
  5. TERCIAN [Concomitant]
     Route: 065
  6. HEPARIN [Concomitant]
     Route: 065
     Dates: start: 20060901

REACTIONS (2)
  - COMA ACIDOTIC [None]
  - THROMBOCYTOPENIA [None]
